FAERS Safety Report 15028262 (Version 7)
Quarter: 2019Q1

REPORT INFORMATION
  Report Type: Report from Study
  Country: CA (occurrence: CA)
  Receive Date: 20180619
  Receipt Date: 20190312
  Transmission Date: 20190417
  Serious: Yes (Hospitalization, Other)
  Sender: FDA-Public Use
  Company Number: PHHY2017CA101959

PATIENT
  Sex: Male

DRUGS (2)
  1. TAFINLAR [Suspect]
     Active Substance: DABRAFENIB MESYLATE
     Indication: METASTATIC MALIGNANT MELANOMA
     Dosage: 300 MG, UNK
     Route: 048
     Dates: start: 20160722, end: 20180414
  2. MEKINIST [Suspect]
     Active Substance: TRAMETINIB DIMETHYL SULFOXIDE
     Indication: METASTATIC MALIGNANT MELANOMA
     Dosage: 2 MG, UNK
     Route: 048
     Dates: start: 20160722, end: 20180814

REACTIONS (12)
  - Blood count abnormal [Unknown]
  - Brain neoplasm [Unknown]
  - Inflammation [Unknown]
  - Malaise [Unknown]
  - Drug intolerance [Unknown]
  - Visual impairment [Unknown]
  - Infection [Unknown]
  - Eye disorder [Unknown]
  - Pyrexia [Unknown]
  - Fall [Unknown]
  - Computerised tomogram thorax abnormal [Unknown]
  - Toxicity to various agents [Unknown]
